FAERS Safety Report 5905829-6 (Version None)
Quarter: 2008Q4

REPORT INFORMATION
  Report Type: 
  Country: None (occurrence: None)
  Receive Date: 20081002
  Receipt Date: 20080926
  Transmission Date: 20090506
  Serious: Yes (Other)
  Sender: FDA-Public Use
  Company Number: D0058850A

PATIENT
  Age: 25 Year
  Sex: Male
  Weight: 95 kg

DRUGS (4)
  1. ELONTRIL [Suspect]
     Dosage: 300MG UNKNOWN
     Route: 048
  2. UNSPECIFIED DRUG [Suspect]
     Route: 048
  3. MIRTAZAPINE [Suspect]
     Dosage: 15MG UNKNOWN
     Route: 048
  4. PAROXETINE HCL [Suspect]
     Dosage: 1200MG PER DAY
     Route: 048

REACTIONS (2)
  - AGGRESSION [None]
  - SUICIDE ATTEMPT [None]
